FAERS Safety Report 8407673-7 (Version None)
Quarter: 2012Q2

REPORT INFORMATION
  Report Type: 
  Country: None (occurrence: None)
  Receive Date: 20120604
  Receipt Date: 20120525
  Transmission Date: 20120825
  Serious: Yes (Hospitalization)
  Sender: FDA-Public Use
  Company Number: US-PFIZER INC-2012014660

PATIENT
  Age: 50 Year
  Sex: Male

DRUGS (5)
  1. CYTARABINE [Suspect]
     Dosage: 27120 MG, TOTAL DOSE
     Route: 042
     Dates: end: 20120312
  2. DASATINIB [Suspect]
     Dosage: 100 MG, 1X/DAY
     Route: 048
     Dates: start: 20120314, end: 20120401
  3. DASATINIB [Suspect]
     Indication: ACUTE MYELOID LEUKAEMIA
     Dosage: 1300 MG, TOTAL DOSE
     Route: 048
     Dates: start: 20110915, end: 20111123
  4. CYTARABINE [Suspect]
     Indication: ACUTE MYELOID LEUKAEMIA
     Dosage: 39060 MG, TOTAL DOSE
     Route: 042
     Dates: start: 20110915, end: 20111107
  5. IDARUBICIN HCL [Suspect]
     Indication: ACUTE MYELOID LEUKAEMIA

REACTIONS (1)
  - FEBRILE NEUTROPENIA [None]
